FAERS Safety Report 9222764 (Version 2)
Quarter: 2013Q3

REPORT INFORMATION
  Report Type: Spontaneous
  Country: FR (occurrence: None)
  Receive Date: 20120914
  Receipt Date: 20130916
  Transmission Date: 20140515
  Serious: Yes (Other)
  Sender: FDA-Public Use
  Company Number: JPI-P-018676

PATIENT
  Age: 48 Year
  Sex: Female

DRUGS (2)
  1. XYREM (500 MILLIGRAM/MILLILITERS, SOLUTION) (SODIUM OXYBATE) [Suspect]
     Indication: CATAPLEXY
     Dosage: 4.5 (2.25 GM, 2 IN 1 D), ORAL
     Route: 048
     Dates: start: 20111024, end: 20111107
  2. DULOXETINE [Concomitant]

REACTIONS (28)
  - Sleep apnoea syndrome [None]
  - Chills [None]
  - Ligament sprain [None]
  - Hypotonia [None]
  - Bone pain [None]
  - Emotional disorder [None]
  - Headache [None]
  - Respiratory disorder [None]
  - Sleep talking [None]
  - Nausea [None]
  - Asthenia [None]
  - Nightmare [None]
  - Fatigue [None]
  - Insomnia [None]
  - Agitation [None]
  - Restless legs syndrome [None]
  - Irritability [None]
  - Malaise [None]
  - Fall [None]
  - Cataplexy [None]
  - Snoring [None]
  - Somnolence [None]
  - Feeling abnormal [None]
  - Sudden onset of sleep [None]
  - Vomiting [None]
  - Nervousness [None]
  - Pain [None]
  - Arthralgia [None]
